FAERS Safety Report 18360998 (Version 1)
Quarter: 2020Q4

REPORT INFORMATION
  Report Type: Spontaneous
  Country: US (occurrence: US)
  Receive Date: 20201008
  Receipt Date: 20201008
  Transmission Date: 20210114
  Serious: No
  Sender: FDA-Public Use
  Company Number: US-BAYER-2020-216725

PATIENT
  Age: 57 Year
  Sex: Female

DRUGS (2)
  1. CLARITIN [Suspect]
     Active Substance: LORATADINE
     Dosage: UNK
  2. DIMETAPP [GUAIFENESIN] [Suspect]
     Active Substance: GUAIFENESIN
     Dosage: UNK

REACTIONS (6)
  - Hypersensitivity [Unknown]
  - Sinuplasty [Unknown]
  - Adverse event [Unknown]
  - Product use complaint [Unknown]
  - Regurgitation [Unknown]
  - Product quality issue [Unknown]
